FAERS Safety Report 9992659 (Version 1)
Quarter: 2014Q1

REPORT INFORMATION
  Report Type: Spontaneous
  Country: US (occurrence: US)
  Receive Date: 20140310
  Receipt Date: 20140310
  Transmission Date: 20141002
  Serious: No
  Sender: FDA-Public Use
  Company Number: US-PFIZER INC-2014068443

PATIENT
  Age: 74 Year
  Sex: Female
  Weight: 81.63 kg

DRUGS (1)
  1. LIPITOR [Suspect]
     Dosage: 20 MG, DAILY

REACTIONS (2)
  - Pain in extremity [Recovered/Resolved]
  - Muscular weakness [Recovered/Resolved]
